FAERS Safety Report 21253693 (Version 1)
Quarter: 2022Q3

REPORT INFORMATION
  Report Type: Spontaneous
  Country: US (occurrence: None)
  Receive Date: 20220824
  Receipt Date: 20220824
  Transmission Date: 20221027
  Serious: Yes (Hospitalization)
  Sender: FDA-Public Use
  Company Number: None

PATIENT
  Age: 65 Year
  Sex: Male

DRUGS (1)
  1. CAPECITABINE [Suspect]
     Active Substance: CAPECITABINE
     Dosage: FREQUENCY : TWICE A DAY;  7 DAYS ON 7 DAYS OFF?
     Route: 048

REACTIONS (3)
  - Procedural pain [None]
  - Off label use [None]
  - Therapy interrupted [None]

NARRATIVE: CASE EVENT DATE: 20220812
